FAERS Safety Report 7572203-9 (Version None)
Quarter: 2011Q2

REPORT INFORMATION
  Report Type: 
  Country: None (occurrence: None)
  Receive Date: 20110624
  Receipt Date: 20110613
  Transmission Date: 20111010
  Serious: Yes (Other)
  Sender: FDA-Public Use
  Company Number: PHHY2011BR04326

PATIENT
  Sex: Male

DRUGS (7)
  1. METOPROLOL SUCCINATE [Concomitant]
     Indication: HYPERTENSION
     Dosage: 25 MG, 2 TABLETS DAILY
     Dates: start: 20060101
  2. ASPIRIN [Concomitant]
     Indication: BLOOD DISORDER
     Dosage: 100 MG, 1 TABLET DAILY
     Route: 048
     Dates: start: 20031201
  3. SIMVASTATIN [Concomitant]
     Indication: BLOOD CHOLESTEROL ABNORMAL
     Dosage: 40 MG, 1 TABLET DAILY
     Route: 048
     Dates: start: 20031201
  4. RASILEZ HCT [Suspect]
     Indication: RENAL DISORDER
     Dosage: 300/12.5 MG, 1 TABLET DAILY
     Dates: start: 20100101
  5. SIMVASTATIN [Concomitant]
     Indication: BLOOD TRIGLYCERIDES ABNORMAL
  6. HYDROCHLOROTHIAZIDE [Concomitant]
     Dosage: 1 TABLET DAILY
     Dates: start: 20090101
  7. METFORMIN HYDROCHLORIDE [Concomitant]
     Indication: GLUCOSE TOLERANCE IMPAIRED
     Dosage: 850 MG, 2 TABLETS DAILY
     Route: 048
     Dates: start: 20100101

REACTIONS (3)
  - SPINAL DISORDER [None]
  - PAIN [None]
  - INFLAMMATION [None]
